FAERS Safety Report 26121381 (Version 1)
Quarter: 2025Q4

REPORT INFORMATION
  Report Type: Spontaneous
  Country: US (occurrence: US)
  Receive Date: 20251204
  Receipt Date: 20251204
  Transmission Date: 20260117
  Serious: No
  Sender: CELLTRION
  Company Number: US-CELLTRION INC.-2024US030220

PATIENT

DRUGS (10)
  1. RITUXIMAB [Suspect]
     Active Substance: RITUXIMAB
     Indication: Renal cell carcinoma
     Dosage: 1000 MG
  2. RITUXIMAB [Suspect]
     Active Substance: RITUXIMAB
     Indication: Myopathy
  3. INFLIXIMAB [Suspect]
     Active Substance: INFLIXIMAB
     Indication: Myopathy
     Dosage: 5 MG/KG
  4. INFLIXIMAB [Suspect]
     Active Substance: INFLIXIMAB
     Indication: Renal cell carcinoma
  5. ABATACEPT [Suspect]
     Active Substance: ABATACEPT
     Indication: Myopathy
     Dosage: 500 MG
  6. ABATACEPT [Suspect]
     Active Substance: ABATACEPT
     Indication: Renal cell carcinoma
  7. METHYLPREDNISOLONE [Suspect]
     Active Substance: METHYLPREDNISOLONE
     Indication: Myopathy
     Route: 042
  8. METHYLPREDNISOLONE [Suspect]
     Active Substance: METHYLPREDNISOLONE
     Indication: Renal cell carcinoma
  9. SOLU-MEDROL [Suspect]
     Active Substance: METHYLPREDNISOLONE SODIUM SUCCINATE
     Indication: Myopathy
     Dosage: ADMINISTERED INITIALLY AT 1 G DAILY, THEN DECREASED TO 1 MG/KG EVERY 12 HOURS, THEN GRADUALLY TAPERE
  10. SOLU-MEDROL [Suspect]
     Active Substance: METHYLPREDNISOLONE SODIUM SUCCINATE
     Indication: Renal cell carcinoma

REACTIONS (1)
  - Intentional product use issue [Unknown]
